FAERS Safety Report 9008044 (Version 3)
Quarter: 2013Q1

REPORT INFORMATION
  Report Type: Spontaneous
  Country: KR (occurrence: None)
  Receive Date: 20121227
  Receipt Date: 20130128
  Transmission Date: 20140127
  Serious: Yes (Death)
  Sender: FDA-Public Use
  Company Number: 1540038

PATIENT
  Age: 59 Year
  Sex: Male

DRUGS (3)
  1. DEXMEDETOMIDINE HYDROCHLORIDE [Suspect]
     Indication: SEDATION
     Route: 041
  2. CHEMOTHERAPEUTICS [Concomitant]
  3. ALBUMIN [Concomitant]

REACTIONS (10)
  - Heart rate increased [None]
  - Shock [None]
  - Bradycardia [None]
  - Oxygen saturation decreased [None]
  - Drug ineffective [None]
  - Alanine aminotransferase increased [None]
  - Blood albumin decreased [None]
  - White blood cell count increased [None]
  - Pneumonia [None]
  - Mental status changes [None]
